FAERS Safety Report 6223529-2 (Version None)
Quarter: 2009Q2

REPORT INFORMATION
  Report Type: 
  Country: None (occurrence: None)
  Receive Date: 20090610
  Receipt Date: 20090602
  Transmission Date: 20091009
  Serious: Yes (Hospitalization)
  Sender: FDA-Public Use
  Company Number: IPS_01659_2009

PATIENT
  Sex: Female

DRUGS (1)
  1. APOKYN [Suspect]
     Indication: DRUG USE FOR UNKNOWN INDICATION
     Dosage: 0.3 ML, FREQUENCY UNKNOWN SUBCUTANEOUS
     Route: 058
     Dates: start: 20090504

REACTIONS (1)
  - CONVULSION [None]
